FAERS Safety Report 17616311 (Version 1)
Quarter: 2020Q1

REPORT INFORMATION
  Report Type: Spontaneous
  Country: US (occurrence: US)
  Receive Date: 20200331
  Receipt Date: 20200331
  Transmission Date: 20200409
  Serious: No
  Sender: FDA-Public Use
  Company Number: None

PATIENT
  Age: 48 Year
  Sex: Female
  Weight: 102.06 kg

DRUGS (1)
  1. XELJANZ XR [Suspect]
     Active Substance: TOFACITINIB CITRATE
     Indication: PSORIATIC ARTHROPATHY
     Dosage: ?          OTHER DOSE:1 TABLET;?
     Route: 048
     Dates: start: 201905

REACTIONS (4)
  - Blood pressure decreased [None]
  - Urinary tract infection [None]
  - Sepsis [None]
  - Therapy cessation [None]
